FAERS Safety Report 23398701 (Version 4)
Quarter: 2024Q1

REPORT INFORMATION
  Report Type: Spontaneous
  Country: TR (occurrence: TR)
  Receive Date: 20240112
  Receipt Date: 20240206
  Transmission Date: 20240409
  Serious: Yes (Life-Threatening, Hospitalization, Other)
  Sender: FDA-Public Use
  Company Number: TR-002147023-NVSC2022TR249274

PATIENT
  Age: 90 Year
  Sex: Female

DRUGS (5)
  1. EXELON [Suspect]
     Active Substance: RIVASTIGMINE TARTRATE
     Indication: Dementia
     Dosage: UNK (START DATE- FOR 10 YEARS)
     Route: 065
  2. SEROQUEL [Suspect]
     Active Substance: QUETIAPINE FUMARATE
     Indication: Product used for unknown indication
     Dosage: UNK
     Route: 065
  3. CIPRALEX [Concomitant]
     Active Substance: ESCITALOPRAM OXALATE
     Indication: Memory impairment
     Dosage: UNK
     Route: 065
  4. MELANDA [Concomitant]
     Indication: Memory impairment
     Dosage: UNK
     Route: 065
  5. MELATONIN [Concomitant]
     Active Substance: MELATONIN
     Indication: Product used for unknown indication
     Route: 065

REACTIONS (24)
  - Oropharyngeal discomfort [Unknown]
  - Arteriosclerosis [Unknown]
  - Movement disorder [Unknown]
  - Disease progression [Unknown]
  - Hallucination [Unknown]
  - General physical health deterioration [Not Recovered/Not Resolved]
  - Blood pressure abnormal [Unknown]
  - Cognitive disorder [Unknown]
  - Blood test abnormal [Unknown]
  - Feeling abnormal [Unknown]
  - Memory impairment [Unknown]
  - Product adhesion issue [Unknown]
  - Product availability issue [Unknown]
  - Dysphagia [Unknown]
  - Fear [Unknown]
  - Confusional state [Unknown]
  - Hypotension [Unknown]
  - Insomnia [Unknown]
  - Hyperhidrosis [Unknown]
  - Aggression [Unknown]
  - Gait disturbance [Unknown]
  - Psychomotor hyperactivity [Unknown]
  - Tremor [Unknown]
  - Dyspepsia [Unknown]
